FAERS Safety Report 21685973 (Version 5)
Quarter: 2023Q1

REPORT INFORMATION
  Report Type: Spontaneous
  Country: US (occurrence: US)
  Receive Date: 20221206
  Receipt Date: 20230223
  Transmission Date: 20230417
  Serious: No
  Sender: FDA-Public Use
  Company Number: US-SA-SAC20220729000535

PATIENT
  Age: 37 Year
  Sex: Female
  Weight: 76.2 kg

DRUGS (2)
  1. CEREZYME [Suspect]
     Active Substance: IMIGLUCERASE
     Indication: Gaucher^s disease
     Dosage: 5600 U QOW
     Dates: start: 20210217
  2. CEREZYME [Suspect]
     Active Substance: IMIGLUCERASE
     Dosage: 60 IU/KG, QOW
     Route: 042

REACTIONS (1)
  - Weight decreased [Unknown]

NARRATIVE: CASE EVENT DATE: 20220101
